FAERS Safety Report 6312529-X (Version None)
Quarter: 2009Q3

REPORT INFORMATION
  Report Type: 
  Country: None (occurrence: None)
  Receive Date: 20090817
  Receipt Date: 20090805
  Transmission Date: 20100115
  Serious: Yes (Other)
  Sender: FDA-Public Use
  Company Number: NO-PFIZER INC-2009250503

PATIENT

DRUGS (2)
  1. XANOR [Suspect]
     Indication: ANXIETY
     Dosage: 0.5 MG, 3X/DAY
     Route: 048
     Dates: start: 19950101
  2. XANOR [Suspect]
     Indication: DEPRESSION

REACTIONS (2)
  - ANGER [None]
  - OBSESSIVE-COMPULSIVE DISORDER [None]
